FAERS Safety Report 4861744-0 (Version None)
Quarter: 2005Q4

REPORT INFORMATION
  Report Type: 
  Country: None (occurrence: None)
  Receive Date: 20051220
  Receipt Date: 20050817
  Transmission Date: 20060501
  Serious: Yes (Hospitalization)
  Sender: FDA-Public Use
  Company Number: US-MERCK-0508USA03263

PATIENT
  Age: 56 Year
  Sex: Male
  Weight: 114 kg

DRUGS (1)
  1. VIOXX [Suspect]
     Indication: ARTHRITIS
     Route: 048
     Dates: start: 20010101, end: 20031001

REACTIONS (19)
  - ANXIETY [None]
  - BLINDNESS [None]
  - BLOOD PRESSURE INCREASED [None]
  - CEREBROVASCULAR ACCIDENT [None]
  - DIPLOPIA [None]
  - DIVERTICULUM [None]
  - DIZZINESS [None]
  - FLANK PAIN [None]
  - GINGIVAL EROSION [None]
  - HEADACHE [None]
  - HYDROCELE [None]
  - INSOMNIA [None]
  - MUSCULOSKELETAL CHEST PAIN [None]
  - ORCHITIS [None]
  - PENILE ULCERATION [None]
  - SINUS DISORDER [None]
  - SLEEP APNOEA SYNDROME [None]
  - TRANSIENT ISCHAEMIC ATTACK [None]
  - VITILIGO [None]
